FAERS Safety Report 13677010 (Version 1)
Quarter: 2017Q2

REPORT INFORMATION
  Report Type: Spontaneous
  Country: US (occurrence: US)
  Receive Date: 20170622
  Receipt Date: 20170622
  Transmission Date: 20170830
  Serious: No
  Sender: FDA-Public Use
  Company Number: US-MYLANLABS-2017M1022883

PATIENT
  Sex: Female

DRUGS (2)
  1. KETOROLAC [Suspect]
     Active Substance: KETOROLAC\KETOROLAC TROMETHAMINE
     Indication: BACK PAIN
  2. KETOROLAC [Suspect]
     Active Substance: KETOROLAC\KETOROLAC TROMETHAMINE
     Indication: HEADACHE
     Dosage: 10 MG, TID
     Route: 048
     Dates: start: 20170217

REACTIONS (1)
  - Drug prescribing error [Unknown]
